APPROVED DRUG PRODUCT: ZERIT XR
Active Ingredient: STAVUDINE
Strength: 75MG
Dosage Form/Route: CAPSULE, EXTENDED RELEASE;ORAL
Application: N021453 | Product #003
Applicant: BRISTOL MYERS SQUIBB CO
Approved: Dec 31, 2002 | RLD: No | RS: No | Type: DISCN